FAERS Safety Report 8569038 (Version 5)
Quarter: 2012Q4

REPORT INFORMATION
  Report Type: 
  Country: DK (occurrence: DK)
  Receive Date: 20120518
  Receipt Date: 20120924
  Transmission Date: 20130627
  Serious: Yes (Hospitalization)
  Sender: FDA-Public Use
  Company Number: PHHY2012DK042267

PATIENT
  Age: 46 Year
  Sex: Female
  Weight: 64.8 kg

DRUGS (2)
  1. GILENYA [Suspect]
     Indication: MULTIPLE SCLEROSIS
     Dosage: UNK UKN, UNK
     Route: 048
     Dates: start: 20120419, end: 20120516
  2. PENICILLIN ^GRUNENTHAL^ [Concomitant]
     Dosage: UNK UKN, UNK

REACTIONS (8)
  - Visual impairment [Recovered/Resolved with Sequelae]
  - Malaise [Recovered/Resolved]
  - Pain [Recovered/Resolved with Sequelae]
  - Chromaturia [Recovered/Resolved]
  - Nausea [Recovered/Resolved]
  - Dyspnoea [Recovered/Resolved with Sequelae]
  - Paraesthesia [Recovered/Resolved]
  - Asthenia [Recovered/Resolved with Sequelae]
